FAERS Safety Report 8155410-6 (Version None)
Quarter: 2012Q1

REPORT INFORMATION
  Report Type: 
  Country: None (occurrence: None)
  Receive Date: 20120222
  Receipt Date: 20120213
  Transmission Date: 20120608
  Serious: Yes (Other)
  Sender: FDA-Public Use
  Company Number: US-AMGEN-USASP2012009840

PATIENT
  Age: 28 Year
  Sex: Female

DRUGS (2)
  1. METHOTREXATE [Concomitant]
     Dosage: 1 MG, 3 TIMES/WK
     Dates: start: 20100701
  2. ENBREL [Suspect]
     Indication: RHEUMATOID ARTHRITIS
     Dosage: 25 MG, 2 TIMES/WK
     Dates: start: 20110727

REACTIONS (5)
  - ABDOMINAL ADHESIONS [None]
  - SINUS HEADACHE [None]
  - PRODUCTIVE COUGH [None]
  - OVARIAN CYST [None]
  - ABDOMINAL DISCOMFORT [None]
